FAERS Safety Report 10866691 (Version 2)
Quarter: 2015Q2

REPORT INFORMATION
  Report Type: Spontaneous
  Country: FR (occurrence: FR)
  Receive Date: 20150225
  Receipt Date: 20150427
  Transmission Date: 20150821
  Serious: Yes (Hospitalization)
  Sender: FDA-Public Use
  Company Number: FR-009507513-1502FRA007823

PATIENT
  Age: 87 Year
  Sex: Male

DRUGS (12)
  1. ZYMAD [Concomitant]
     Active Substance: CHOLECALCIFEROL
     Dosage: UNK
  2. NEBILOX [Concomitant]
     Active Substance: NEBIVOLOL HYDROCHLORIDE
     Dosage: UNK
  3. TARDYFERON [Concomitant]
     Active Substance: FERROUS SULFATE\FOLIC ACID
     Dosage: UNK
  4. VANCOMYCIN HYDROCHLORIDE. [Suspect]
     Active Substance: VANCOMYCIN HYDROCHLORIDE
     Indication: BACTERIAL SEPSIS
     Dosage: 1 G, QD/1G EVERY 24HOURS
     Route: 042
     Dates: start: 20150112
  5. ARESTAL [Concomitant]
     Active Substance: LOPERAMIDE OXIDE
     Dosage: UNK
  6. FUROSEMIDE ARROW [Concomitant]
     Active Substance: FUROSEMIDE
     Dosage: UNK
     Route: 048
  7. ALLOPURINOL ALMUS [Concomitant]
     Dosage: UNK
     Route: 048
  8. NORSET [Concomitant]
     Active Substance: MIRTAZAPINE
     Dosage: UNK
  9. OMEPRAZOL ACTAVIS [Concomitant]
     Active Substance: OMEPRAZOLE
     Dosage: UNK
  10. FINASTERIDE ALTER [Concomitant]
     Dosage: UNK
  11. TIENAM 500MG, POUDRE POUR PERFUSION AVEC SYSTEME DE TRANSFERT SET [Suspect]
     Active Substance: CILASTATIN SODIUM\IMIPENEM
     Indication: BACTERIAL SEPSIS
     Dosage: 500 MG, TID/500MG 3 TIMES DAILY
     Route: 042
     Dates: start: 20150114, end: 20150119
  12. LYRICA [Concomitant]
     Active Substance: PREGABALIN
     Dosage: UNK

REACTIONS (1)
  - Status epilepticus [Recovered/Resolved]

NARRATIVE: CASE EVENT DATE: 20150118
